FAERS Safety Report 11991076 (Version 1)
Quarter: 2016Q1

REPORT INFORMATION
  Report Type: Spontaneous
  Country: FR (occurrence: FR)
  Receive Date: 20160203
  Receipt Date: 20160203
  Transmission Date: 20160526
  Serious: Yes (Congenital Anomaly)
  Sender: FDA-Public Use
  Company Number: FR-009507513-1602FRA000736

PATIENT

DRUGS (14)
  1. CELLCEPT [Suspect]
     Active Substance: MYCOPHENOLATE MOFETIL\MYCOPHENOLATE MOFETIL HYDROCHLORIDE
     Dosage: 2 G DAILY
     Route: 064
     Dates: start: 20141113, end: 20151217
  2. PLAQUENIL [Suspect]
     Active Substance: HYDROXYCHLOROQUINE SULFATE
     Dosage: 400 MG, QD
     Route: 064
     Dates: start: 20141113, end: 20150511
  3. BACTRIM [Concomitant]
     Active Substance: SULFAMETHOXAZOLE\TRIMETHOPRIM
     Dosage: UNK
     Route: 064
     Dates: start: 20150411, end: 20150505
  4. ROVAMYCINE [Concomitant]
     Active Substance: SPIRAMYCIN
     Dosage: UNK
     Route: 064
     Dates: start: 20150411, end: 20150505
  5. LOSARTAN POTASSIUM. [Suspect]
     Active Substance: LOSARTAN POTASSIUM
     Dosage: 100 MG, QD
     Route: 064
     Dates: start: 20141113, end: 20141217
  6. CORTANCYL [Suspect]
     Active Substance: PREDNISONE
     Dosage: 30 MG, QD
     Route: 064
     Dates: start: 20141113, end: 20141217
  7. LASILIX [Suspect]
     Active Substance: FUROSEMIDE
     Dosage: UNK
     Route: 064
     Dates: start: 20141217, end: 20150511
  8. CLAMOXYL [Concomitant]
     Active Substance: AMOXICILLIN\CLAVULANIC ACID
     Dosage: UNK
     Route: 064
     Dates: start: 20150411, end: 20150505
  9. LOXEN [Suspect]
     Active Substance: NICARDIPINE HYDROCHLORIDE
     Dosage: 100 MG, QD
     Route: 064
     Dates: start: 20141113, end: 20150511
  10. TAMIFLU [Concomitant]
     Active Substance: OSELTAMIVIR PHOSPHATE
     Dosage: UNK
     Route: 064
     Dates: start: 20150411, end: 20150505
  11. TRANDATE [Suspect]
     Active Substance: LABETALOL HYDROCHLORIDE
     Dosage: 400 MG, QD
     Route: 064
     Dates: start: 20150115, end: 20150511
  12. LOVENOX [Suspect]
     Active Substance: ENOXAPARIN SODIUM
     Dosage: 1.2 ML, QD
     Route: 064
     Dates: start: 20141113, end: 20150511
  13. ASPEGIC [Suspect]
     Active Substance: ASPIRIN DL-LYSINE
     Dosage: 100 MG, QD
     Route: 064
     Dates: start: 20141113, end: 20150511
  14. IMUREL [Suspect]
     Active Substance: AZATHIOPRINE SODIUM
     Dosage: 125 MG, QD
     Route: 064
     Dates: start: 20141113, end: 20150511

REACTIONS (2)
  - Pierre Robin syndrome [Not Recovered/Not Resolved]
  - Polyhydramnios [Not Recovered/Not Resolved]

NARRATIVE: CASE EVENT DATE: 20150416
